FAERS Safety Report 8439723-6 (Version None)
Quarter: 2012Q2

REPORT INFORMATION
  Report Type: 
  Country: None (occurrence: None)
  Receive Date: 20120615
  Receipt Date: 20120611
  Transmission Date: 20120825
  Serious: Yes (Hospitalization, Disabling, Other)
  Sender: FDA-Public Use
  Company Number: JP-PFIZER INC-2012118371

PATIENT
  Age: 34 Year
  Sex: Male

DRUGS (2)
  1. SOLU-MEDROL [Suspect]
     Indication: NEPHROTIC SYNDROME
     Dosage: 1000 MG (3 DAYS 2 CYCLES), DAILY
     Route: 042
     Dates: start: 20090801, end: 20090901
  2. SOLU-MEDROL [Suspect]
     Indication: DRUG THERAPY

REACTIONS (1)
  - OSTEONECROSIS [None]
